FAERS Safety Report 22348260 (Version 8)
Quarter: 2023Q4

REPORT INFORMATION
  Report Type: Spontaneous
  Country: CA (occurrence: CA)
  Receive Date: 20230522
  Receipt Date: 20231229
  Transmission Date: 20240109
  Serious: Yes (Other)
  Sender: FDA-Public Use
  Company Number: CA-CELLTRION INC.-2023CA009418

PATIENT

DRUGS (11)
  1. INFLECTRA [Suspect]
     Active Substance: INFLIXIMAB-DYYB
     Indication: Rheumatoid arthritis
     Dosage: 400 MG (ON WEEK 0) EVERY 8 WEEKS
     Route: 042
     Dates: start: 20230508
  2. INFLECTRA [Suspect]
     Active Substance: INFLIXIMAB-DYYB
     Dosage: 400 MG, (3 MG/KG) EVERY 8 WEEKS
     Route: 042
     Dates: start: 20230508
  3. INFLECTRA [Suspect]
     Active Substance: INFLIXIMAB-DYYB
     Dosage: 400 MG (3MG/KG), EVERY 8 WEEKS,
     Route: 042
     Dates: start: 20230523
  4. INFLECTRA [Suspect]
     Active Substance: INFLIXIMAB-DYYB
     Dosage: 400 MG (3MG/KG), EVERY 8 WEEKS,
     Route: 042
     Dates: start: 20230523
  5. INFLECTRA [Suspect]
     Active Substance: INFLIXIMAB-DYYB
     Dosage: 400 MG, EVERY 8 WEEKS (WEEKS 6 DOSE)
     Route: 042
     Dates: start: 20230619
  6. INFLECTRA [Suspect]
     Active Substance: INFLIXIMAB-DYYB
     Dosage: 400 MG, EVERY 8 WEEKS
     Route: 042
     Dates: start: 20230814
  7. INFLECTRA [Suspect]
     Active Substance: INFLIXIMAB-DYYB
     Dosage: 400 MG, EVERY 8 WEEKS
     Route: 042
     Dates: start: 20230814
  8. INFLECTRA [Suspect]
     Active Substance: INFLIXIMAB-DYYB
     Dosage: 600 MG, AFTER 8 WEEKS AND 3 DAYS (SUPPOSED TO RECIEVE IN EVERY 8 WEEKS)
     Route: 042
     Dates: start: 20231012
  9. INFLECTRA [Suspect]
     Active Substance: INFLIXIMAB-DYYB
     Dosage: 600 MG, EVERY 8 WEEKS
     Route: 042
     Dates: start: 20231207
  10. SULFASALAZINE [Concomitant]
     Active Substance: SULFASALAZINE
     Indication: Rheumatoid arthritis
     Dosage: 1000 MG, FOR 15-16 YEARS
  11. SULFASALAZINE [Concomitant]
     Active Substance: SULFASALAZINE
     Dosage: UNK, RESTARTED
     Dates: start: 202303

REACTIONS (16)
  - Blood pressure increased [Not Recovered/Not Resolved]
  - Therapeutic response shortened [Unknown]
  - Vomiting [Recovered/Resolved]
  - Ocular hyperaemia [Not Recovered/Not Resolved]
  - Dry eye [Not Recovered/Not Resolved]
  - Procedural pain [Unknown]
  - Chills [Not Recovered/Not Resolved]
  - Fatigue [Not Recovered/Not Resolved]
  - Arthralgia [Unknown]
  - Pain [Not Recovered/Not Resolved]
  - Heart rate decreased [Unknown]
  - Gait disturbance [Not Recovered/Not Resolved]
  - Off label use [Unknown]
  - Off label use [Unknown]
  - Off label use [Unknown]
  - Intentional product use issue [Unknown]

NARRATIVE: CASE EVENT DATE: 20230101
